FAERS Safety Report 4353459-2 (Version None)
Quarter: 2004Q2

REPORT INFORMATION
  Report Type: 
  Country: None (occurrence: None)
  Receive Date: 20040430
  Receipt Date: 20040422
  Transmission Date: 20050107
  Serious: Yes (Death)
  Sender: FDA-Public Use
  Company Number: US-JNJFOC-20040401073

PATIENT
  Age: 62 Year
  Sex: Female

DRUGS (10)
  1. DURAGESIC [Suspect]
     Indication: PAIN
     Dosage: 50 UG/HR, 1 IN 72 HOUR, TRANSDERMAL
     Route: 062
     Dates: start: 20030201, end: 20040201
  2. OXYGEN [Concomitant]
  3. SKELAXIN [Concomitant]
  4. OXYCODONE [Concomitant]
  5. THEOPHYLLINE [Concomitant]
  6. METHOTREXATE [Concomitant]
  7. PREDNISONE [Concomitant]
  8. FOLIC ACID [Concomitant]
  9. COLCHICINE [Concomitant]
  10. OXYCODONE HCL [Concomitant]

REACTIONS (1)
  - RENAL FAILURE [None]
